FAERS Safety Report 5129250-6 (Version None)
Quarter: 2006Q4

REPORT INFORMATION
  Report Type: 
  Country: None (occurrence: None)
  Receive Date: 20061011
  Receipt Date: 20060929
  Transmission Date: 20070319
  Serious: Yes (Hospitalization, Other)
  Sender: FDA-Public Use
  Company Number: 02100-JPN-06-0454

PATIENT
  Age: 77 Year
  Sex: Male

DRUGS (11)
  1. CILOSTAZOL [Suspect]
     Indication: ARTERIOSCLEROSIS OBLITERANS
     Dosage: 300 MG ORAL
     Route: 048
     Dates: start: 20060626, end: 20060628
  2. CILOSTAZOL [Suspect]
     Indication: ARTERIOSCLEROSIS OBLITERANS
     Dosage: 300 MG ORAL
     Route: 048
     Dates: start: 20060821, end: 20060904
  3. PRAVASTATIN SODIUM [Concomitant]
  4. AMLODIPINE BESYLATE [Concomitant]
  5. FLUNITRAZEPAM [Concomitant]
  6. TAMSULOSIN HCL [Concomitant]
  7. PROPIVERINE HYDROCHLORIDE [Concomitant]
  8. WARFARIN SODIUM [Concomitant]
  9. ... [Concomitant]
  10. ... [Concomitant]
  11. BERAPROST SODIUM [Concomitant]

REACTIONS (1)
  - VENTRICULAR TACHYCARDIA [None]
